FAERS Safety Report 5862669-4 (Version None)
Quarter: 2008Q3

REPORT INFORMATION
  Report Type: 
  Country: None (occurrence: None)
  Receive Date: 20080828
  Receipt Date: 20080820
  Transmission Date: 20090109
  Serious: Yes (Other)
  Sender: FDA-Public Use
  Company Number: CA-JNJFOC-20080804730

PATIENT
  Sex: Female

DRUGS (1)
  1. REMICADE [Suspect]
     Indication: COLITIS ULCERATIVE
     Route: 042

REACTIONS (12)
  - ARTHRALGIA [None]
  - CONSTIPATION [None]
  - DYSPNOEA [None]
  - EYE PAIN [None]
  - HAEMORRHAGE [None]
  - HEADACHE [None]
  - INADEQUATE DIET [None]
  - NAUSEA [None]
  - OROPHARYNGEAL PAIN [None]
  - PAIN [None]
  - SWELLING FACE [None]
  - WEIGHT INCREASED [None]
